FAERS Safety Report 9126038 (Version 1)
Quarter: 2013Q1

REPORT INFORMATION
  Report Type: Report from Study
  Country: US (occurrence: US)
  Receive Date: 20130121
  Receipt Date: 20130121
  Transmission Date: 20140127
  Serious: Yes (Hospitalization)
  Sender: FDA-Public Use
  Company Number: US-ABBOTT-13P-163-1035317-00

PATIENT
  Age: 62 None
  Sex: Male

DRUGS (3)
  1. HUMIRA [Suspect]
     Indication: PSORIASIS
     Dates: start: 2011, end: 201211
  2. HUMIRA [Suspect]
     Indication: PSORIATIC ARTHROPATHY
  3. METHOTREXATE [Concomitant]
     Indication: PRODUCT USED FOR UNKNOWN INDICATION

REACTIONS (6)
  - Organ failure [Recovered/Resolved]
  - Generalised oedema [Recovered/Resolved]
  - Pancreatitis [Recovered/Resolved]
  - Cardiac arrest [Recovered/Resolved]
  - Cholelithiasis [Recovered/Resolved]
  - Hiatus hernia [Not Recovered/Not Resolved]
